FAERS Safety Report 25406644 (Version 1)
Quarter: 2025Q2

REPORT INFORMATION
  Report Type: Spontaneous
  Country: US (occurrence: US)
  Receive Date: 20250606
  Receipt Date: 20250606
  Transmission Date: 20250716
  Serious: Yes (Death, Life-Threatening, Hospitalization, Other)
  Sender: DR REDDYS
  Company Number: US-DRL-USA-USA/2025/06/008048

PATIENT
  Age: 76 Year
  Sex: Male

DRUGS (8)
  1. DILTIAZEM [Suspect]
     Active Substance: DILTIAZEM
     Indication: Atrial fibrillation
  2. HEPARIN [Suspect]
     Active Substance: HEPARIN SODIUM
     Indication: Anticoagulant therapy
  3. PLAVIX [Suspect]
     Active Substance: CLOPIDOGREL BISULFATE
     Indication: Anticoagulant therapy
     Route: 048
  4. METOPROLOL TARTRATE [Concomitant]
     Active Substance: METOPROLOL TARTRATE
     Indication: Atrial fibrillation
  5. APIXABAN [Concomitant]
     Active Substance: APIXABAN
     Indication: Atrial fibrillation
  6. AMIODARONE [Concomitant]
     Active Substance: AMIODARONE
     Indication: Ventricular tachycardia
     Route: 040
  7. LIDOCAINE [Concomitant]
     Active Substance: LIDOCAINE
     Indication: Ventricular tachycardia
  8. IBRUTINIB [Concomitant]
     Active Substance: IBRUTINIB
     Indication: Chronic lymphocytic leukaemia

REACTIONS (5)
  - Acute respiratory failure [Fatal]
  - Haemothorax [Unknown]
  - Pericardial effusion [Unknown]
  - Drug ineffective [Unknown]
  - Product use in unapproved indication [Unknown]
